FAERS Safety Report 24411828 (Version 1)
Quarter: 2024Q4

REPORT INFORMATION
  Report Type: Spontaneous
  Country: US (occurrence: US)
  Receive Date: 20241008
  Receipt Date: 20241008
  Transmission Date: 20250114
  Serious: No
  Sender: ABBVIE
  Company Number: US-ABBVIE-5949080

PATIENT
  Age: 61 Year
  Sex: Female

DRUGS (9)
  1. BOTOX [Suspect]
     Active Substance: ONABOTULINUMTOXINA
     Indication: Product used for unknown indication
     Dosage: TIME INTERVAL: AS NECESSARY: 10 UNITS?FREQUENCY TEXT: DAY 1
     Route: 030
     Dates: start: 20240919, end: 20240919
  2. BOTOX [Suspect]
     Active Substance: ONABOTULINUMTOXINA
     Indication: Product used for unknown indication
     Dosage: TIME INTERVAL: AS NECESSARY: 20 UNITS?FREQUENCY TEXT: DAY 1
     Route: 030
     Dates: start: 20240919, end: 20240919
  3. BOTOX [Suspect]
     Active Substance: ONABOTULINUMTOXINA
     Indication: Product used for unknown indication
     Dosage: TIME INTERVAL: AS NECESSARY: 20 UNITS?FREQUENCY TEXT: DAY 1
     Route: 030
     Dates: start: 20240919, end: 20240919
  4. LOSARTAN [Concomitant]
     Active Substance: LOSARTAN
     Indication: Hypertension
     Dosage: FORM STRENGTH: 100 MILLIGRAM
  5. METOPROLOL [Concomitant]
     Active Substance: METOPROLOL
     Indication: Atrial fibrillation
     Dosage: FORM STRENGTH: 50 MILLIGRAM
  6. ROSUVASTATIN [Concomitant]
     Active Substance: ROSUVASTATIN
     Indication: Hyperlipidaemia
     Dosage: FORM STRENGTH 40 MILLIGRAM
  7. ASPIRIN [Concomitant]
     Active Substance: ASPIRIN
     Indication: Atrial fibrillation
     Dosage: FORM STRENGTH: 81 MILLIGRAM
  8. EZETIMIBE [Concomitant]
     Active Substance: EZETIMIBE
     Indication: Hyperlipidaemia
     Dosage: FORM STRENGTH: 10 MILLIGRAM
  9. AMLODIPINE [Concomitant]
     Active Substance: AMLODIPINE BESYLATE
     Indication: Hypertension
     Dosage: FORM STRENGTH: 5 MILLIGRAM

REACTIONS (3)
  - Throat tightness [Recovering/Resolving]
  - Drug hypersensitivity [Recovering/Resolving]
  - Rash [Recovering/Resolving]

NARRATIVE: CASE EVENT DATE: 20240919
